FAERS Safety Report 18950399 (Version 1)
Quarter: 2021Q1

REPORT INFORMATION
  Report Type: Spontaneous
  Country: US (occurrence: US)
  Receive Date: 20210228
  Receipt Date: 20210228
  Transmission Date: 20210420
  Serious: No
  Sender: FDA-Public Use
  Company Number: US-ROCHE-2735766

PATIENT
  Age: 34 Year
  Sex: Male
  Weight: 76.73 kg

DRUGS (4)
  1. ZYRTEC (UNITED STATES) [Concomitant]
     Indication: URTICARIA
     Dosage: ONGOING_YES
     Route: 048
     Dates: start: 202005
  2. MONTELUKAST [Concomitant]
     Active Substance: MONTELUKAST SODIUM
     Indication: URTICARIA
     Dosage: NIGHTLY ONGOING: YES
     Dates: start: 202005
  3. XOLAIR [Suspect]
     Active Substance: OMALIZUMAB
     Indication: URTICARIA
     Dosage: ONGOING: YES
     Route: 030
     Dates: start: 20201012
  4. ATARAX [Concomitant]
     Active Substance: HYDROXYZINE HYDROCHLORIDE
     Indication: URTICARIA
     Dosage: NIGHTLY; ONGOING: YES
     Route: 048
     Dates: start: 202005

REACTIONS (3)
  - Intentional product use issue [Unknown]
  - Arthralgia [Not Recovered/Not Resolved]
  - Off label use [Unknown]

NARRATIVE: CASE EVENT DATE: 20201012
